FAERS Safety Report 13129568 (Version 1)
Quarter: 2017Q1

REPORT INFORMATION
  Report Type: Spontaneous
  Country: US (occurrence: US)
  Receive Date: 20170119
  Receipt Date: 20170119
  Transmission Date: 20170428
  Serious: No
  Sender: FDA-Public Use
  Company Number: US-ASTRAZENECA-2017SE04074

PATIENT
  Age: 8 Month
  Sex: Female
  Weight: 7.2 kg

DRUGS (4)
  1. SYNAGIS [Suspect]
     Active Substance: PALIVIZUMAB
     Indication: CARDIOVASCULAR DISORDER
     Route: 030
     Dates: start: 20161214
  2. SYNAGIS [Suspect]
     Active Substance: PALIVIZUMAB
     Indication: VENTRICLE RUPTURE
     Route: 030
     Dates: start: 20161214
  3. SYNAGIS [Suspect]
     Active Substance: PALIVIZUMAB
     Indication: CYANOSIS
     Route: 030
     Dates: start: 20161214
  4. SYNAGIS [Suspect]
     Active Substance: PALIVIZUMAB
     Indication: HEART DISEASE CONGENITAL
     Route: 030
     Dates: start: 20161214

REACTIONS (2)
  - Intentional product misuse [Recovered/Resolved]
  - Respiratory syncytial virus infection [Unknown]

NARRATIVE: CASE EVENT DATE: 20161214
